FAERS Safety Report 20869704 (Version 1)
Quarter: 2022Q2

REPORT INFORMATION
  Report Type: Report from Study
  Country: JP (occurrence: JP)
  Receive Date: 20220525
  Receipt Date: 20220525
  Transmission Date: 20220721
  Serious: Yes (Other)
  Sender: FDA-Public Use
  Company Number: JP-TAKEDA-2022TJP050306

PATIENT
  Age: 21 Year
  Sex: Male
  Weight: 78 kg

DRUGS (6)
  1. VELAGLUCERASE ALFA [Suspect]
     Active Substance: VELAGLUCERASE ALFA
     Indication: Gaucher^s disease type III
     Dosage: UNK
     Route: 041
     Dates: start: 20120601, end: 20140913
  2. VELAGLUCERASE ALFA [Suspect]
     Active Substance: VELAGLUCERASE ALFA
     Indication: Enzyme supplementation
     Dosage: 3600 INTERNATIONAL UNIT, ONCE EVERY 2-4 WEEKS
     Route: 041
     Dates: start: 20140913, end: 20160806
  3. VELAGLUCERASE ALFA [Suspect]
     Active Substance: VELAGLUCERASE ALFA
     Dosage: 3600 INTERNATIONAL UNIT, ONCE EVERY 2-4 WEEKS
     Route: 041
     Dates: start: 20160910, end: 20171012
  4. VELAGLUCERASE ALFA [Suspect]
     Active Substance: VELAGLUCERASE ALFA
     Dosage: 3600 INTERNATIONAL UNIT, ONCE EVERY 2-4 WEEKS
     Route: 041
     Dates: start: 20171101, end: 20180929
  5. NEXIUM [Concomitant]
     Active Substance: ESOMEPRAZOLE MAGNESIUM
     Indication: Prophylaxis
     Dosage: 20 MILLIGRAM
     Route: 048
     Dates: start: 20181003, end: 20181009
  6. CEFAZOLIN SODIUM [Concomitant]
     Active Substance: CEFAZOLIN SODIUM
     Indication: Prophylaxis
     Dosage: 3 GRAM
     Route: 042
     Dates: start: 20181002, end: 20181003

REACTIONS (3)
  - Postoperative wound infection [Recovered/Resolved]
  - Post-traumatic pain [Recovered/Resolved]
  - Headache [Recovered/Resolved]

NARRATIVE: CASE EVENT DATE: 20181003
